FAERS Safety Report 13989519 (Version 1)
Quarter: 2017Q3

REPORT INFORMATION
  Report Type: Spontaneous
  Country: US (occurrence: US)
  Receive Date: 20170920
  Receipt Date: 20170920
  Transmission Date: 20171128
  Serious: No
  Sender: FDA-Public Use
  Company Number: US-TEVA-695536USA

PATIENT
  Sex: Female

DRUGS (1)
  1. LACTULOSE. [Suspect]
     Active Substance: LACTULOSE
     Route: 065

REACTIONS (1)
  - Gluten sensitivity [Unknown]
